FAERS Safety Report 11930489 (Version 2)
Quarter: 2018Q2

REPORT INFORMATION
  Report Type: Spontaneous
  Country: US (occurrence: US)
  Receive Date: 20160120
  Receipt Date: 20180619
  Transmission Date: 20180711
  Serious: No
  Sender: FDA-Public Use
  Company Number: US-ACTELION PHARMACEUTICALS US, INC.-A-NJ2015-129387

PATIENT
  Age: 71 Year
  Sex: Female

DRUGS (1)
  1. VALCHLOR [Suspect]
     Active Substance: MECHLORETHAMINE
     Indication: MYCOSIS FUNGOIDES
     Dosage: UNK
     Route: 061
     Dates: start: 20151210

REACTIONS (8)
  - Application site erythema [Unknown]
  - Skin burning sensation [Unknown]
  - Application site pruritus [Unknown]
  - Pruritus [Unknown]
  - Skin swelling [Unknown]
  - Swelling [Unknown]
  - Skin irritation [Unknown]
  - Erythema [Unknown]
